FAERS Safety Report 19094125 (Version 2)
Quarter: 2021Q2

REPORT INFORMATION
  Report Type: Spontaneous
  Country: LB (occurrence: LB)
  Receive Date: 20210405
  Receipt Date: 20210416
  Transmission Date: 20210717
  Serious: Yes (Death, Hospitalization, Other)
  Sender: FDA-Public Use
  Company Number: LB-B.I. PHARMACEUTICALS,INC./RIDGEFIELD-2021-BI-094511

PATIENT
  Age: 63 Year
  Sex: Female
  Weight: 34.5 kg

DRUGS (2)
  1. OFEV [Suspect]
     Active Substance: NINTEDANIB
     Indication: IDIOPATHIC PULMONARY FIBROSIS
     Route: 048
     Dates: start: 201707, end: 201907
  2. HISTAMED [CETIRIZINE HYDROCHLORIDE] [Concomitant]
     Indication: PRODUCT USED FOR UNKNOWN INDICATION

REACTIONS (6)
  - Blood count abnormal [Unknown]
  - Weight decreased [Unknown]
  - Drug ineffective [Unknown]
  - Immunodeficiency [Unknown]
  - Cardiac arrest [Fatal]
  - Cardiac disorder [Unknown]

NARRATIVE: CASE EVENT DATE: 201812
